FAERS Safety Report 9369617 (Version 2)
Quarter: 2014Q2

REPORT INFORMATION
  Report Type: Spontaneous
  Country: US (occurrence: US)
  Receive Date: 20130626
  Receipt Date: 20140626
  Transmission Date: 20141212
  Serious: No
  Sender: FDA-Public Use
  Company Number: US-MYLANLABS-2013S1007860

PATIENT
  Sex: Male
  Weight: 90.72 kg

DRUGS (4)
  1. PERFOROMIST (FORMOTEROL FUMARATE) INHALATION SOLUTION [Suspect]
     Indication: CHRONIC OBSTRUCTIVE PULMONARY DISEASE
     Route: 055
  2. PERFOROMIST (FORMOTEROL FUMARATE) INHALATION SOLUTION [Suspect]
     Indication: CHRONIC OBSTRUCTIVE PULMONARY DISEASE
     Route: 055
  3. BUDESONIDE [Concomitant]
     Route: 048
  4. CARBIDOPA + LEVODOPA [Concomitant]
     Route: 048

REACTIONS (1)
  - Tremor [Not Recovered/Not Resolved]
